FAERS Safety Report 24623133 (Version 2)
Quarter: 2024Q4

REPORT INFORMATION
  Report Type: Spontaneous
  Country: FR (occurrence: FR)
  Receive Date: 20241115
  Receipt Date: 20241121
  Transmission Date: 20250114
  Serious: Yes (Hospitalization)
  Sender: AUROBINDO
  Company Number: FR-ROCHE-10000110193

PATIENT
  Age: 54 Year
  Sex: Female

DRUGS (10)
  1. PREDNISONE [Suspect]
     Active Substance: PREDNISONE
     Indication: High-grade B-cell lymphoma
     Dosage: 80 MILLIGRAM, ONCE A DAY
     Route: 065
     Dates: start: 20240930
  2. PREDNISONE [Suspect]
     Active Substance: PREDNISONE
     Dosage: 100 MILLIGRAM, ONCE A DAY
     Route: 065
     Dates: start: 20241001
  3. DOXORUBICIN [Suspect]
     Active Substance: DOXORUBICIN
     Indication: High-grade B-cell lymphoma
     Dosage: 100 MILLIGRAM, EVERY 3 WEEKS
     Route: 042
     Dates: start: 20240930
  4. RITUXIMAB [Suspect]
     Active Substance: RITUXIMAB
     Indication: High-grade B-cell lymphoma
     Dosage: 750 MILLIGRAM, EVERY 3 WEEKS
     Route: 042
     Dates: start: 20240930
  5. CYCLOPHOSPHAMIDE [Suspect]
     Active Substance: CYCLOPHOSPHAMIDE
     Indication: High-grade B-cell lymphoma
     Dosage: 1500 MILLIGRAM, EVERY 3 WEEKS
     Route: 042
     Dates: start: 20240930
  6. VINCRISTINE [Suspect]
     Active Substance: VINCRISTINE
     Indication: High-grade B-cell lymphoma
     Dosage: 2 MILLIGRAM, EVERY 3 WEEKS
     Route: 042
     Dates: start: 20240930
  7. GOLCADOMIDE [Suspect]
     Active Substance: GOLCADOMIDE
     Indication: High-grade B-cell lymphoma
     Dosage: UNK UNK, ONCE A DAY
     Route: 048
     Dates: start: 20240930
  8. APIXABAN [Concomitant]
     Active Substance: APIXABAN
     Indication: Product used for unknown indication
     Dosage: 5 MILLIGRAM, ONCE A DAY
     Route: 048
     Dates: start: 20240930
  9. NEULASTA [Concomitant]
     Active Substance: PEGFILGRASTIM
     Indication: Product used for unknown indication
     Dosage: 6 MILLIGRAM, EVERY 1 MONTH
     Route: 058
     Dates: start: 20241001
  10. XANAX [Concomitant]
     Active Substance: ALPRAZOLAM
     Indication: Anxiety
     Dosage: 0.5 MILLIGRAM, ONCE A DAY
     Route: 048
     Dates: start: 20240920

REACTIONS (1)
  - Febrile bone marrow aplasia [Not Recovered/Not Resolved]

NARRATIVE: CASE EVENT DATE: 20241008
